FAERS Safety Report 5250356-5 (Version None)
Quarter: 2007Q1

REPORT INFORMATION
  Report Type: 
  Country: None (occurrence: None)
  Receive Date: 20070228
  Receipt Date: 20060331
  Transmission Date: 20070707
  Serious: No
  Sender: FDA-Public Use
  Company Number: US-GLAXOSMITHKLINE-A0599937A

PATIENT
  Age: 39 Year
  Sex: Female

DRUGS (7)
  1. LAMICTAL [Suspect]
     Indication: BIPOLAR DISORDER
     Dosage: 25MG PER DAY
     Route: 048
     Dates: start: 20060320
  2. XANAX [Concomitant]
  3. NEXIUM [Concomitant]
  4. OXYCONTIN [Concomitant]
  5. REGLAN [Concomitant]
  6. ZELNORM [Concomitant]
  7. CARAFATE [Concomitant]

REACTIONS (1)
  - RASH [None]
